FAERS Safety Report 13975455 (Version 1)
Quarter: 2017Q3

REPORT INFORMATION
  Report Type: Not Available
  Country: US (occurrence: US)
  Receive Date: 20170915
  Receipt Date: 20170915
  Transmission Date: 20171128
  Serious: Yes (Hospitalization)
  Sender: FDA-Public Use
  Company Number: US-ANIPHARMA-2017-US-010733

PATIENT
  Age: 54 Year
  Sex: Male

DRUGS (6)
  1. FLUOXETINE HYDROCHLORIDE (NON-SPECIFIC) [Suspect]
     Active Substance: FLUOXETINE HYDROCHLORIDE
  2. LITHIUM CARBONATE (NON-SPECIFIC) [Suspect]
     Active Substance: LITHIUM
  3. CLOZAPINE. [Suspect]
     Active Substance: CLOZAPINE
  4. PROPRANOLOL EXTENDED RELEASE CAPSULES (NON-SPECIFIC) [Concomitant]
     Active Substance: PROPRANOLOL HYDROCHLORIDE
  5. OSELTAMIVIR [Suspect]
     Active Substance: OSELTAMIVIR
  6. PRIMIDONE. [Concomitant]
     Active Substance: PRIMIDONE

REACTIONS (2)
  - Serotonin syndrome [Recovered/Resolved]
  - Drug interaction [Unknown]
